FAERS Safety Report 7916007-3 (Version None)
Quarter: 2011Q4

REPORT INFORMATION
  Report Type: 
  Country: None (occurrence: None)
  Receive Date: 20111115
  Receipt Date: 20111107
  Transmission Date: 20120403
  Serious: Yes (Disabling)
  Sender: FDA-Public Use
  Company Number: CA-ASTRAZENECA-2011SE67250

PATIENT
  Age: 67 Year
  Sex: Male
  Weight: 72.6 kg

DRUGS (11)
  1. LESCOL [Suspect]
     Route: 065
  2. VITAMIN E [Concomitant]
     Route: 048
  3. EZETIMIBE [Concomitant]
     Route: 048
  4. NOVO METOPROL [Concomitant]
     Route: 048
  5. VITAMIN D [Concomitant]
     Route: 048
  6. CRESTOR [Suspect]
     Route: 048
  7. LESCOL [Suspect]
     Route: 048
  8. ALTACE [Concomitant]
     Route: 048
  9. ASAPHEN EC [Concomitant]
     Route: 048
  10. CENTRUM CARDIO [Concomitant]
     Route: 048
  11. LIPITOR [Suspect]
     Route: 065

REACTIONS (4)
  - ARTHRITIS [None]
  - GAIT DISTURBANCE [None]
  - PAIN IN EXTREMITY [None]
  - MUSCULOSKELETAL STIFFNESS [None]
